FAERS Safety Report 10360908 (Version 2)
Quarter: 2014Q3

REPORT INFORMATION
  Report Type: Report from Study
  Country: US (occurrence: US)
  Receive Date: 20140804
  Receipt Date: 20140804
  Transmission Date: 20150326
  Serious: Yes (Death, Hospitalization)
  Sender: FDA-Public Use
  Company Number: US-BRISTOL-MYERS SQUIBB COMPANY-20976387

PATIENT
  Age: 65 Year
  Sex: Female
  Weight: 92.8 kg

DRUGS (8)
  1. ZOSYN [Suspect]
     Active Substance: PIPERACILLIN SODIUM\TAZOBACTAM SODIUM
  2. IDARUBICIN [Suspect]
     Active Substance: IDARUBICIN
     Indication: ACUTE MYELOID LEUKAEMIA
     Dosage: 72.36MG,TOTAL DOSE
     Dates: start: 20140527
  3. ALLOPURINOL. [Suspect]
     Active Substance: ALLOPURINOL
  4. PRAVASTATIN SODIUM. [Suspect]
     Active Substance: PRAVASTATIN SODIUM
     Indication: ACUTE MYELOID LEUKAEMIA
     Dosage: TOTAL DOSE 10240MG
     Dates: start: 20140527
  5. PROTONIX [Suspect]
     Active Substance: PANTOPRAZOLE SODIUM
  6. GENTAMICIN [Suspect]
     Active Substance: GENTAMICIN
  7. KEFLEX [Suspect]
     Active Substance: CEPHALEXIN
  8. CYTARABINE. [Suspect]
     Active Substance: CYTARABINE
     Indication: ACUTE MYELOID LEUKAEMIA
     Dosage: 12000 MG,TOTAL
     Dates: start: 20140527

REACTIONS (2)
  - Hypotension [Fatal]
  - Renal failure acute [Not Recovered/Not Resolved]

NARRATIVE: CASE EVENT DATE: 20140604
